FAERS Safety Report 7101624-3 (Version None)
Quarter: 2010Q4

REPORT INFORMATION
  Report Type: 
  Country: None (occurrence: None)
  Receive Date: 20101115
  Receipt Date: 20101101
  Transmission Date: 20110411
  Serious: Yes (Other)
  Sender: FDA-Public Use
  Company Number: PHHY2010CA72140

PATIENT
  Sex: Male

DRUGS (4)
  1. ZOMETA [Suspect]
     Indication: METASTASES TO BONE
     Dosage: 4 MG, Q 21-28 DAYS
     Route: 042
     Dates: start: 20100101, end: 20100901
  2. WARFARIN [Concomitant]
  3. TAXOTERE [Concomitant]
  4. PREDNISONE [Concomitant]

REACTIONS (2)
  - DEBRIDEMENT [None]
  - OSTEONECROSIS OF JAW [None]
